FAERS Safety Report 12397224 (Version 1)
Quarter: 2016Q2

REPORT INFORMATION
  Report Type: Spontaneous
  Country: US (occurrence: US)
  Receive Date: 20160524
  Receipt Date: 20160524
  Transmission Date: 20160815
  Serious: No
  Sender: FDA-Public Use
  Company Number: US-PFIZER INC-2016240289

PATIENT
  Age: 66 Year
  Sex: Female

DRUGS (8)
  1. LYRICA [Suspect]
     Active Substance: PREGABALIN
     Indication: PAIN
     Dosage: 100 MG, 3X/DAY
     Route: 048
     Dates: start: 2014
  2. CYMBALTA [Concomitant]
     Active Substance: DULOXETINE HYDROCHLORIDE
     Indication: DEPRESSION
     Dosage: 120 MG, DAILY
     Route: 048
     Dates: start: 2012
  3. SYNTHROID [Concomitant]
     Active Substance: LEVOTHYROXINE SODIUM
     Indication: HYPOTHYROIDISM
     Dosage: 75 UG, 1X/DAY
     Route: 048
     Dates: start: 201603
  4. KETAMINE [Concomitant]
     Active Substance: KETAMINE
     Indication: DEPRESSION
     Dosage: INTRANASAL 7 SPRAYS EVERY THREE DAYS
     Route: 045
     Dates: start: 2015
  5. ATENOLOL. [Concomitant]
     Active Substance: ATENOLOL
     Indication: TREMOR
     Dosage: 25 MG, 1X/DAY
     Route: 048
     Dates: start: 201603
  6. MORPHINE SULFATE. [Concomitant]
     Active Substance: MORPHINE SULFATE
     Indication: PAIN
     Dosage: IMMEDIATE RELEASE, 15 MG, AS NEEDED
     Route: 048
     Dates: start: 2012
  7. XANAX [Concomitant]
     Active Substance: ALPRAZOLAM
     Indication: SOCIAL ANXIETY DISORDER
     Dosage: 0.25 MG, AS NEEDED
     Route: 048
     Dates: start: 2014
  8. MORPHINE SULFATE. [Concomitant]
     Active Substance: MORPHINE SULFATE
     Indication: PAIN
     Dosage: EXTENDED RELEASE, 30 MG, 2X/DAY
     Route: 048
     Dates: start: 2012

REACTIONS (3)
  - Swelling [Recovering/Resolving]
  - Product use issue [Unknown]
  - Oedema peripheral [Recovering/Resolving]

NARRATIVE: CASE EVENT DATE: 2014
